FAERS Safety Report 4864329-5 (Version None)
Quarter: 2005Q4

REPORT INFORMATION
  Report Type: 
  Country: None (occurrence: None)
  Receive Date: 20051222
  Receipt Date: 20051212
  Transmission Date: 20060501
  Serious: Yes (Death, Hospitalization)
  Sender: FDA-Public Use
  Company Number: DE-MERCK-0512USA02506

PATIENT
  Age: 47 Year
  Sex: Male

DRUGS (4)
  1. DECADRON [Suspect]
     Indication: CHEMOTHERAPY
     Route: 048
     Dates: start: 20030401
  2. GEMCITABINE [Suspect]
     Indication: CHEMOTHERAPY
     Route: 065
     Dates: start: 20030401
  3. VINORELBINE TARTRATE [Suspect]
     Indication: CHEMOTHERAPY
     Route: 065
     Dates: start: 20030401
  4. METHOTREXATE [Suspect]
     Indication: CHEMOTHERAPY
     Route: 065
     Dates: start: 20030401

REACTIONS (3)
  - DEATH [None]
  - HAEMOLYTIC URAEMIC SYNDROME [None]
  - HYPERTENSION [None]
